FAERS Safety Report 7862319-1 (Version None)
Quarter: 2011Q4

REPORT INFORMATION
  Report Type: 
  Country: None (occurrence: None)
  Receive Date: 20111027
  Receipt Date: 20101105
  Transmission Date: 20120403
  Serious: No
  Sender: FDA-Public Use
  Company Number: US-AMGEN-USASP2010003599

PATIENT
  Age: 54 Year
  Sex: Female

DRUGS (1)
  1. ENBREL [Suspect]
     Indication: RHEUMATOID ARTHRITIS
     Dosage: 50 MG, QWK
     Dates: start: 20101025

REACTIONS (5)
  - INJECTION SITE URTICARIA [None]
  - FACIAL PAIN [None]
  - EPISTAXIS [None]
  - INJECTION SITE PAIN [None]
  - EAR PAIN [None]
